FAERS Safety Report 13056459 (Version 2)
Quarter: 2017Q1

REPORT INFORMATION
  Report Type: Report from Study
  Country: RU (occurrence: RU)
  Receive Date: 20161222
  Receipt Date: 20170202
  Transmission Date: 20170428
  Serious: Yes (Death, Other)
  Sender: FDA-Public Use
  Company Number: RU-GILEAD-2016-0248965

PATIENT
  Age: 49 Year
  Sex: Male
  Weight: 59.2 kg

DRUGS (1)
  1. EMTRICITABINE/TENOFOVIR DISOPROXIL FUMARATE [Suspect]
     Active Substance: EMTRICITABINE\TENOFOVIR DISOPROXIL FUMARATE
     Indication: HIV INFECTION
     Dosage: 1 DF, QD
     Route: 065

REACTIONS (9)
  - Craniocerebral injury [Fatal]
  - Lower limb fracture [Fatal]
  - Brain contusion [Fatal]
  - Hepatic rupture [Fatal]
  - Unevaluable event [Fatal]
  - Head injury [Fatal]
  - Road traffic accident [Fatal]
  - Injury [Fatal]
  - Death [Fatal]
